FAERS Safety Report 8583526-9 (Version None)
Quarter: 2012Q3

REPORT INFORMATION
  Report Type: 
  Country: None (occurrence: None)
  Receive Date: 20120809
  Receipt Date: 20120802
  Transmission Date: 20120928
  Serious: Yes (Other)
  Sender: FDA-Public Use
  Company Number: PHHY2012TW067267

PATIENT
  Age: 47 Year
  Sex: Female

DRUGS (2)
  1. TEICOPLANIN [Suspect]
     Indication: BACTERIAL INFECTION
     Dosage: 400 MG, UNK
  2. VANCOMYCIN [Suspect]
     Indication: BACTERIAL INFECTION
     Dosage: 2 G, UNK

REACTIONS (9)
  - LYMPHADENOPATHY [None]
  - THROMBOCYTOPENIA [None]
  - DRUG HYPERSENSITIVITY [None]
  - HEPATITIS [None]
  - HEPATIC ENZYME INCREASED [None]
  - LEUKOPENIA [None]
  - MYALGIA [None]
  - PYREXIA [None]
  - NEUTROPENIA [None]
